FAERS Safety Report 9971933 (Version 1)
Quarter: 2014Q1

REPORT INFORMATION
  Report Type: Spontaneous
  Country: JP (occurrence: None)
  Receive Date: 20140304
  Receipt Date: 20140304
  Transmission Date: 20141002
  Serious: Yes (Other)
  Sender: FDA-Public Use
  Company Number: 2014P1001602

PATIENT
  Age: 32 Year
  Sex: Male
  Weight: 78 kg

DRUGS (4)
  1. MIDAZOLAM HCL [Suspect]
     Indication: ANAESTHESIA
     Route: 042
  2. THIOPENTAL [Suspect]
     Indication: ANAESTHESIA
     Route: 042
  3. ROCURONIUM [Suspect]
     Indication: ANAESTHESIA
     Route: 042
  4. WARFARIN [Concomitant]

REACTIONS (3)
  - Cardiopulmonary failure [None]
  - Bronchial obstruction [None]
  - Vascular compression [None]
